FAERS Safety Report 21454723 (Version 1)
Quarter: 2022Q4

REPORT INFORMATION
  Report Type: Spontaneous
  Country: FR (occurrence: None)
  Receive Date: 20221014
  Receipt Date: 20221014
  Transmission Date: 20230113
  Serious: Yes (Other)
  Sender: FDA-Public Use
  Company Number: 2022A342838

PATIENT
  Sex: Male

DRUGS (5)
  1. DAPAGLIFLOZIN [Suspect]
     Active Substance: DAPAGLIFLOZIN
     Route: 048
  2. TELMISARTAN [Concomitant]
     Active Substance: TELMISARTAN
     Route: 065
  3. METFORMIN [Concomitant]
     Active Substance: METFORMIN HYDROCHLORIDE
     Route: 065
  4. ESOMEPRAZOLE [Concomitant]
     Active Substance: ESOMEPRAZOLE
     Route: 065
  5. DULOXETINE [Concomitant]
     Active Substance: DULOXETINE
     Route: 065

REACTIONS (2)
  - Fungal infection [Not Recovered/Not Resolved]
  - Prostatitis [Unknown]
